FAERS Safety Report 4718927-X (Version None)
Quarter: 2005Q3

REPORT INFORMATION
  Report Type: 
  Country: None (occurrence: None)
  Receive Date: 20050719
  Receipt Date: 20050708
  Transmission Date: 20060218
  Serious: Yes (Other)
  Sender: FDA-Public Use
  Company Number: 2005-07-0449

PATIENT
  Age: 52 Year
  Sex: Male

DRUGS (1)
  1. REBETOL [Suspect]
     Dosage: ORAL
     Route: 048

REACTIONS (5)
  - COCCIDIOIDOMYCOSIS [None]
  - DEPRESSION [None]
  - PNEUMONIA [None]
  - RIFT VALLEY FEVER [None]
  - SARCOIDOSIS [None]
